FAERS Safety Report 7979832-9 (Version None)
Quarter: 2011Q4

REPORT INFORMATION
  Report Type: 
  Country: None (occurrence: None)
  Receive Date: 20111214
  Receipt Date: 20111201
  Transmission Date: 20120403
  Serious: Yes (Hospitalization)
  Sender: FDA-Public Use
  Company Number: US-ELI_LILLY_AND_COMPANY-US201112000530

PATIENT
  Age: 30 Year
  Sex: Male

DRUGS (1)
  1. AXIRON [Suspect]
     Indication: ANDROGEN DEFICIENCY
     Dosage: 60 MG, UNK

REACTIONS (1)
  - PHLEBITIS [None]
